FAERS Safety Report 5458187-8 (Version None)
Quarter: 2007Q3

REPORT INFORMATION
  Report Type: 
  Country: None (occurrence: None)
  Receive Date: 20070919
  Receipt Date: 20070907
  Transmission Date: 20080115
  Serious: Yes (Hospitalization)
  Sender: FDA-Public Use
  Company Number: DE-SOLVAY-00307032911

PATIENT
  Age: 583 Month
  Sex: Male
  Weight: 78 kg

DRUGS (9)
  1. KREON GRANULAT [Suspect]
     Indication: PANCREATIC INSUFFICIENCY
     Dosage: DAILY DOSE: 3 SACHETS
     Route: 048
     Dates: start: 20061201, end: 20070501
  2. KREON GRANULAT [Suspect]
     Dosage: DAILY DOSE: 1 SACHET WITH FIRST MEAL, 2 WITH EACH 3 MAIN MEALS, 1 WITH LAST MEAL
     Route: 048
     Dates: start: 20070501
  3. NOVAMINSULFON [Concomitant]
     Indication: SURGERY
     Dosage: DAILY DOSE:  UNKNOWN; FORM: DROPS, FREQUENCY AS NEEDED
     Route: 065
     Dates: start: 20060801
  4. FENTANYL [Suspect]
     Indication: SURGERY
     Dosage: DAILY DOSE:  UNKNOWN
     Route: 065
     Dates: start: 20070101
  5. MCP [Concomitant]
     Indication: SURGERY
     Dosage: DAILY DOSE:  UNKNOWN; FREQUENCY AS NEEDED
     Route: 065
     Dates: start: 20041001
  6. OMEPRAZOLE [Concomitant]
     Indication: SURGERY
     Dosage: DAILY DOSE: 80 MILLIGRAM(S)
     Route: 065
     Dates: start: 20041001
  7. VALORON 8 MG [Suspect]
     Indication: SURGERY
     Dosage: DAILY DOSE: 16 MILLIGRAM(S)
     Route: 065
     Dates: start: 20060701
  8. OXYGESIC 10 MG [Suspect]
     Indication: SURGERY
     Dosage: DAILY DOSE: 80 MILLIGRAM(S) : 10MG AS NEEDED
     Route: 065
     Dates: start: 20070501
  9. OMNIFLORA N [Concomitant]
     Indication: SURGERY
     Dosage: DAILY DOSE:  UNKNOWN; FREQUENCY TWICE A DAY
     Route: 065
     Dates: start: 20060201

REACTIONS (6)
  - DYSPHAGIA [None]
  - DYSPNOEA [None]
  - GASTROINTESTINAL HAEMORRHAGE [None]
  - MALAISE [None]
  - VISUAL DISTURBANCE [None]
  - WEIGHT DECREASED [None]
